FAERS Safety Report 8367595-7 (Version None)
Quarter: 2012Q1

REPORT INFORMATION
  Report Type: 
  Country: None (occurrence: None)
  Receive Date: 20120323
  Receipt Date: 20110909
  Transmission Date: 20120608
  Serious: Yes (Other)
  Sender: FDA-Public Use
  Company Number: 163-21880-11080072

PATIENT
  Age: 70 Year
  Sex: Female

DRUGS (16)
  1. SINGULAIR [Concomitant]
  2. ACYCLOVIR [Concomitant]
  3. DECADRON [Concomitant]
  4. OSCAL (CALCIUM CARBONATE) [Concomitant]
  5. LOVENOX [Concomitant]
  6. ATIVAN [Concomitant]
  7. EFFEXOR [Concomitant]
  8. REVLIMID [Suspect]
     Indication: MULTIPLE MYELOMA
     Dosage: 25 MG, X21D, PO ; 25 MG, X14D, PO
     Route: 048
     Dates: start: 20100922, end: 20110101
  9. REVLIMID [Suspect]
     Indication: MULTIPLE MYELOMA
     Dosage: 25 MG, X21D, PO ; 25 MG, X14D, PO
     Route: 048
     Dates: start: 20110601
  10. BEROCCA (BEROCCA) [Concomitant]
  11. AMBIEN [Concomitant]
  12. ZOMETA [Concomitant]
  13. ENOXAPARIN SODIUM [Concomitant]
  14. POTASSIUM CHLORIDE [Concomitant]
  15. PREVACID [Concomitant]
  16. ACETAMINOPHEN [Concomitant]

REACTIONS (1)
  - PULMONARY EMBOLISM [None]
